FAERS Safety Report 7166773-2 (Version None)
Quarter: 2010Q4

REPORT INFORMATION
  Report Type: 
  Country: None (occurrence: None)
  Receive Date: 20101216
  Receipt Date: 20101214
  Transmission Date: 20110411
  Serious: Yes (Death, Hospitalization, Other)
  Sender: FDA-Public Use
  Company Number: US-B.I. PHARMACEUTICALS,INC./RIDGEFIELD-2010-BP-12474BP

PATIENT
  Sex: Female

DRUGS (8)
  1. SPIRIVA [Suspect]
     Indication: CHRONIC OBSTRUCTIVE PULMONARY DISEASE
     Dosage: 18 MCG
     Route: 055
     Dates: start: 20040101
  2. ALBUTEROL [Concomitant]
  3. ALBUTEROL PREMIX [Concomitant]
  4. IPRATROPIUM BR [Concomitant]
  5. TAMOXIFEN CITRATE [Concomitant]
  6. SINGULAIR [Concomitant]
  7. NIFEDIAC CC ER [Concomitant]
  8. THEOPHYLLINE T.D. [Concomitant]

REACTIONS (3)
  - BREAST CANCER [None]
  - PNEUMONIA [None]
  - SEPSIS [None]
